FAERS Safety Report 21562084 (Version 3)
Quarter: 2022Q4

REPORT INFORMATION
  Report Type: Report from Study
  Country: US (occurrence: US)
  Receive Date: 20221107
  Receipt Date: 20221205
  Transmission Date: 20230112
  Serious: Yes (Hospitalization)
  Sender: FDA-Public Use
  Company Number: US-PFIZER INC-202201259480

PATIENT
  Age: 16 Year

DRUGS (25)
  1. TALAZOPARIB [Suspect]
     Active Substance: TALAZOPARIB
     Indication: Ewing^s sarcoma recurrent
     Dosage: BID D1
     Dates: start: 20221012, end: 20221012
  2. TALAZOPARIB [Suspect]
     Active Substance: TALAZOPARIB
     Dosage: QD DAYS 2-6
     Dates: start: 20221013, end: 20221017
  3. ONIVYDE [Suspect]
     Active Substance: IRINOTECAN HYDROCHLORIDE
     Indication: Ewing^s sarcoma recurrent
     Dosage: 253.7 MG
     Route: 042
     Dates: start: 20221012, end: 20221012
  4. ACETAMINOPHEN [Concomitant]
     Active Substance: ACETAMINOPHEN
     Indication: Antipyresis
     Dosage: UNK
     Route: 048
     Dates: start: 20221022, end: 20221023
  5. CEFEPIME [Concomitant]
     Active Substance: CEFEPIME HYDROCHLORIDE
     Indication: Antibiotic therapy
     Dosage: UNK
     Route: 042
     Dates: start: 20221022, end: 20221023
  6. ALKALINE [Concomitant]
     Indication: Mouth injury
     Dosage: UNK
     Route: 048
     Dates: start: 20221021
  7. CETIRIZINE [Concomitant]
     Active Substance: CETIRIZINE HYDROCHLORIDE
     Indication: Antiallergic therapy
     Dosage: UNK
     Route: 048
     Dates: start: 20221019
  8. DIPHENHYDRAMINE [Concomitant]
     Active Substance: DIPHENHYDRAMINE
     Indication: Antiallergic therapy
     Dosage: UNK
     Route: 042
     Dates: start: 20221021, end: 20221023
  9. DIPHENHYDRAMINE [Concomitant]
     Active Substance: DIPHENHYDRAMINE
     Indication: Antiallergic therapy
     Dosage: UNK
     Route: 048
     Dates: start: 20221012
  10. FAMOTIDINE [Concomitant]
     Active Substance: FAMOTIDINE
     Indication: Prophylaxis
     Dosage: UNK
     Route: 048
     Dates: start: 20221012
  11. HYDROCORTISONE [Concomitant]
     Active Substance: HYDROCORTISONE
     Indication: Adrenocortical steroid therapy
     Dosage: UNK
     Route: 061
     Dates: start: 20221020
  12. HYDROMORPHONE [Concomitant]
     Active Substance: HYDROMORPHONE
     Indication: Analgesic therapy
     Dosage: UNK
     Route: 042
     Dates: start: 20221021, end: 20221023
  13. ACETAMINOPHEN\HYDROCODONE [Concomitant]
     Active Substance: ACETAMINOPHEN\HYDROCODONE
     Indication: Analgesic therapy
     Dosage: UNK
     Route: 048
     Dates: start: 20221023
  14. HYDROXYZINE [Concomitant]
     Active Substance: HYDROXYZINE HYDROCHLORIDE
     Indication: Antiallergic therapy
     Dosage: UNK
     Route: 048
     Dates: start: 20221019
  15. HYOSCYAMINE [Concomitant]
     Active Substance: HYOSCYAMINE
     Indication: Muscle spasms
     Dosage: UNK
     Route: 048
     Dates: start: 20221020
  16. LOPERAMIDE [Concomitant]
     Active Substance: LOPERAMIDE
     Indication: Antidiarrhoeal supportive care
     Dosage: UNK
     Route: 048
     Dates: start: 20221012
  17. ONDANSETRON [Concomitant]
     Active Substance: ONDANSETRON
     Indication: Antiemetic supportive care
     Dosage: UNK
     Route: 048
     Dates: start: 20221012
  18. SULFAMETHOXAZOLE\TRIMETHOPRIM [Concomitant]
     Active Substance: SULFAMETHOXAZOLE\TRIMETHOPRIM
     Indication: Antibiotic prophylaxis
     Dosage: UNK
     Route: 048
     Dates: start: 20221012, end: 20221020
  19. CEFIXIME [Concomitant]
     Active Substance: CEFIXIME
     Indication: Prophylaxis
     Dosage: UNK
     Route: 048
     Dates: start: 20221012, end: 20221016
  20. DEXAMETHASONE [Concomitant]
     Active Substance: DEXAMETHASONE
     Indication: Antiemetic supportive care
     Dosage: UNK
     Route: 042
     Dates: start: 20221012, end: 20221012
  21. FOSAPREPITANT [Concomitant]
     Active Substance: FOSAPREPITANT
     Indication: Antiemetic supportive care
     Dosage: UNK
     Route: 042
     Dates: start: 20221012, end: 20221012
  22. MEDROXYPROGESTERONE [Concomitant]
     Active Substance: MEDROXYPROGESTERONE
     Indication: Contraception
     Dosage: UNK
     Route: 030
     Dates: start: 20221010
  23. NYSTATIN\TRIAMCINOLONE [Concomitant]
     Active Substance: NYSTATIN\TRIAMCINOLONE
     Indication: Antifungal prophylaxis
     Dosage: UNK
     Route: 061
     Dates: start: 20221019, end: 20221021
  24. NYSTATIN\TRIAMCINOLONE [Concomitant]
     Active Substance: NYSTATIN\TRIAMCINOLONE
     Indication: Adrenocortical steroid therapy
  25. SODIUM CHLORIDE [Concomitant]
     Active Substance: SODIUM CHLORIDE
     Indication: Fluid replacement
     Dosage: UNK
     Route: 042
     Dates: start: 20221012, end: 20221012

REACTIONS (1)
  - Febrile neutropenia [Unknown]

NARRATIVE: CASE EVENT DATE: 20221025
